FAERS Safety Report 9487082 (Version 2)
Quarter: 2013Q3

REPORT INFORMATION
  Report Type: Spontaneous
  Country: IE (occurrence: IE)
  Receive Date: 20130829
  Receipt Date: 20130906
  Transmission Date: 20140515
  Serious: Yes (Other)
  Sender: FDA-Public Use
  Company Number: IE-JHP PHARMACEUTICALS, LLC-JHP201300522

PATIENT
  Age: 63 Year
  Sex: Female

DRUGS (1)
  1. ADRENALIN [Suspect]
     Indication: RESUSCITATION
     Route: 042

REACTIONS (2)
  - Infusion site extravasation [Recovered/Resolved]
  - Peripheral ischaemia [Recovered/Resolved with Sequelae]
